FAERS Safety Report 17577379 (Version 2)
Quarter: 2020Q1

REPORT INFORMATION
  Report Type: Spontaneous
  Country: FR (occurrence: FR)
  Receive Date: 20200324
  Receipt Date: 20200327
  Transmission Date: 20200409
  Serious: Yes (Hospitalization)
  Sender: FDA-Public Use
  Company Number: FR-TEVA-2020-FR-1211242

PATIENT
  Age: 32 Year
  Sex: Male

DRUGS (6)
  1. LOXAPAC [Suspect]
     Active Substance: LOXAPINE
     Indication: WRONG PATIENT RECEIVED PRODUCT
     Dosage: 125 MG
     Route: 048
     Dates: start: 20200128, end: 20200128
  2. AMISULPRIDE [Suspect]
     Active Substance: AMISULPRIDE
     Indication: WRONG PATIENT RECEIVED PRODUCT
     Dosage: 400 MG
     Route: 048
     Dates: start: 20200128, end: 20200128
  3. TIAPRIDAL [Suspect]
     Active Substance: TIAPRIDE HYDROCHLORIDE
     Indication: WRONG PATIENT RECEIVED PRODUCT
     Dosage: 100 MG
     Route: 048
     Dates: start: 20200128, end: 20200128
  4. DEPAKOTE [Suspect]
     Active Substance: DIVALPROEX SODIUM
     Indication: WRONG PATIENT RECEIVED PRODUCT
     Dosage: 500 MG
     Route: 048
     Dates: start: 20200128, end: 20200128
  5. TAMSULOSINE [Suspect]
     Active Substance: TAMSULOSIN HYDROCHLORIDE
     Indication: WRONG PATIENT RECEIVED PRODUCT
     Dosage: 0.4 MG
     Route: 048
     Dates: start: 20200128, end: 20200128
  6. NEULEPTIL [Suspect]
     Active Substance: PERICIAZINE
     Indication: WRONG PATIENT RECEIVED PRODUCT
     Dosage: 25 MG
     Route: 048
     Dates: start: 20200128, end: 20200128

REACTIONS (2)
  - Seizure [Recovered/Resolved]
  - Wrong patient received product [Recovered/Resolved]

NARRATIVE: CASE EVENT DATE: 20200128
